FAERS Safety Report 5649014-4 (Version None)
Quarter: 2008Q1

REPORT INFORMATION
  Report Type: 
  Country: None (occurrence: None)
  Receive Date: 20080304
  Receipt Date: 20080227
  Transmission Date: 20080703
  Serious: Yes (Other)
  Sender: FDA-Public Use
  Company Number: TW-JNJFOC-20080206531

PATIENT
  Age: 50 Year
  Sex: Male

DRUGS (1)
  1. RISPERDAL [Suspect]
     Indication: SCHIZOPHRENIA
     Dosage: 3-4 MG DAILY
     Route: 048
     Dates: start: 20070101, end: 20080101

REACTIONS (1)
  - THROMBOCYTOPENIA [None]
